FAERS Safety Report 21453658 (Version 6)
Quarter: 2024Q3

REPORT INFORMATION
  Report Type: Spontaneous
  Country: IT (occurrence: IT)
  Receive Date: 20221013
  Receipt Date: 20240816
  Transmission Date: 20241017
  Serious: Yes (Death, Hospitalization, Other)
  Sender: PFIZER
  Company Number: IT-BAXTER-2022BAX020808

PATIENT
  Age: 68 Year
  Sex: Male
  Weight: 80 kg

DRUGS (33)
  1. VINCRISTINE SULFATE [Suspect]
     Active Substance: VINCRISTINE SULFATE
     Indication: Diffuse large B-cell lymphoma stage IV
     Dosage: 1.4 MILLIGRAM/SQ. METER,1Q3W, C1D1 - C6D1
     Route: 042
     Dates: start: 20211123, end: 20220321
  2. RITUXIMAB [Suspect]
     Active Substance: RITUXIMAB
     Indication: Diffuse large B-cell lymphoma stage IV
     Dosage: 375 MILLIGRAM/SQ. METER, 1Q3W, C1D1 - C6D1
     Route: 042
     Dates: start: 20211123, end: 20220321
  3. DOXORUBICIN HYDROCHLORIDE [Suspect]
     Active Substance: DOXORUBICIN HYDROCHLORIDE
     Indication: Diffuse large B-cell lymphoma stage IV
     Dosage: 50 MILLIGRAM/SQ. METER, 1Q3W, C1D1 - C6D1, DOSAGE FORM: SOLUTION FOR INFUSION
     Route: 042
     Dates: start: 20211123, end: 20220321
  4. METHYLPREDNISOLONE SODIUM SUCCINATE [Suspect]
     Active Substance: METHYLPREDNISOLONE SODIUM SUCCINATE
     Indication: Diffuse large B-cell lymphoma stage IV
     Dosage: 80 MILLIGRAM, 1Q3W
     Route: 042
     Dates: start: 20211123, end: 20220321
  5. CYCLOPHOSPHAMIDE [Suspect]
     Active Substance: CYCLOPHOSPHAMIDE
     Indication: Diffuse large B-cell lymphoma stage IV
     Dosage: 750 MILLIGRAM/SQ. METER,1Q3W, C1D1 - C6D1
     Route: 042
     Dates: start: 20211123, end: 20220321
  6. EPCORITAMAB [Suspect]
     Active Substance: EPCORITAMAB
     Indication: Diffuse large B-cell lymphoma stage IV
     Dosage: 0.16 MG PRIMING DOSE, C1D1
     Route: 058
     Dates: start: 20211124, end: 20211124
  7. EPCORITAMAB [Suspect]
     Active Substance: EPCORITAMAB
     Dosage: UNK, C5D1-C6D1
     Route: 058
     Dates: start: 20220218, end: 20220321
  8. EPCORITAMAB [Suspect]
     Active Substance: EPCORITAMAB
     Dosage: C7D1-C9D1, 48 MG, LATEST DOSE
     Route: 058
     Dates: start: 20220412, end: 20220622
  9. EPCORITAMAB [Suspect]
     Active Substance: EPCORITAMAB
     Dosage: FULL DOSE 48 MG, C1D15 TO C4D15
     Route: 058
     Dates: start: 20211208, end: 20220211
  10. EPCORITAMAB [Suspect]
     Active Substance: EPCORITAMAB
     Dosage: INTERMEDIATE DOSE 0.8 MG, C1D8
     Route: 058
     Dates: start: 20211201, end: 20211201
  11. GLICLAZIDE [Concomitant]
     Active Substance: GLICLAZIDE
     Dosage: UNK
     Route: 065
     Dates: start: 20211120
  12. GLICLAZIDE [Concomitant]
     Active Substance: GLICLAZIDE
     Dosage: UNK
     Dates: start: 20211120
  13. GLICLAZIDE [Concomitant]
     Active Substance: GLICLAZIDE
     Dosage: UNK
     Route: 065
     Dates: start: 20220204
  14. TRIMETHOPRIM [Concomitant]
     Active Substance: TRIMETHOPRIM
     Dosage: UNK
     Route: 065
     Dates: start: 20211126
  15. SULFAMETHOXAZOLE [Concomitant]
     Active Substance: SULFAMETHOXAZOLE
     Dosage: UNK
     Route: 065
     Dates: start: 20211126
  16. VALACYCLOVIR HYDROCHLORIDE [Concomitant]
     Active Substance: VALACYCLOVIR HYDROCHLORIDE
     Dosage: UNK
     Route: 065
     Dates: start: 20220318
  17. VALACYCLOVIR HYDROCHLORIDE [Concomitant]
     Active Substance: VALACYCLOVIR HYDROCHLORIDE
     Dosage: UNK
     Route: 065
     Dates: start: 20220313
  18. ALLOPURINOL [Concomitant]
     Active Substance: ALLOPURINOL
     Indication: Prophylaxis
     Dosage: UNK
     Route: 065
     Dates: start: 20211112
  19. OMEPRAZOLE [Concomitant]
     Active Substance: OMEPRAZOLE
     Dosage: UNK
     Route: 065
     Dates: start: 20220412
  20. LOPERAMIDE [Concomitant]
     Active Substance: LOPERAMIDE
     Dosage: UNK
     Route: 065
     Dates: start: 20220330
  21. PREGABALIN [Concomitant]
     Active Substance: PREGABALIN
     Dosage: UNK
     Route: 065
     Dates: start: 20220318
  22. EDOXABAN [Concomitant]
     Active Substance: EDOXABAN
     Dosage: UNK
     Route: 065
     Dates: start: 20220429
  23. EPOETIN ALFA [Concomitant]
     Active Substance: ERYTHROPOIETIN
     Dosage: UNK
     Route: 065
     Dates: start: 20220421
  24. VITAMINS NOS [Concomitant]
     Active Substance: VITAMINS
     Dosage: UNK
     Route: 065
     Dates: start: 20220412
  25. NEBIVOLOL [Concomitant]
     Active Substance: NEBIVOLOL
     Dosage: UNK
     Route: 065
     Dates: start: 202111
  26. METFORMIN [Concomitant]
     Active Substance: METFORMIN HYDROCHLORIDE
     Dosage: UNK
     Route: 065
     Dates: start: 1983
  27. ESOMEPRAZOLE [Concomitant]
     Active Substance: ESOMEPRAZOLE
     Dosage: UNK
     Dates: start: 20211215
  28. ACYCLOVIR [Concomitant]
     Active Substance: ACYCLOVIR
     Dosage: UNK
     Route: 065
     Dates: start: 20220105
  29. JANUMET [Concomitant]
     Active Substance: METFORMIN HYDROCHLORIDE\SITAGLIPTIN PHOSPHATE
     Dosage: UNK
     Route: 065
     Dates: start: 20220204
  30. ERYTHROPOIETIN [Concomitant]
     Active Substance: ERYTHROPOIETIN
     Indication: Product used for unknown indication
     Dosage: UNK
     Dates: start: 20211126
  31. ERYTHROPOIETIN [Concomitant]
     Active Substance: ERYTHROPOIETIN
     Dosage: UNK
     Dates: start: 20220421
  32. LIDOCAINE HYDROCHLORIDE [Concomitant]
     Active Substance: LIDOCAINE HYDROCHLORIDE
     Dosage: UNK
     Route: 065
     Dates: start: 20220326
  33. NALOXONE HYDROCHLORIDE\OXYCODONE HYDROCHLORIDE [Concomitant]
     Active Substance: NALOXONE HYDROCHLORIDE\OXYCODONE HYDROCHLORIDE
     Dosage: UNK
     Route: 065
     Dates: start: 20220412

REACTIONS (5)
  - Cardiac failure [Fatal]
  - Cytopenia [Not Recovered/Not Resolved]
  - Diarrhoea [Unknown]
  - Asthenia [Unknown]
  - Decreased appetite [Unknown]

NARRATIVE: CASE EVENT DATE: 20220911
